FAERS Safety Report 18069966 (Version 1)
Quarter: 2020Q3

REPORT INFORMATION
  Report Type: Spontaneous
  Country: GB (occurrence: GB)
  Receive Date: 20200727
  Receipt Date: 20200727
  Transmission Date: 20201103
  Serious: Yes (Other)
  Sender: FDA-Public Use
  Company Number: GB-TEVA-2020-GB-1804783

PATIENT
  Age: 59 Year
  Sex: Male

DRUGS (7)
  1. OMEPRAZOLE. [Concomitant]
     Active Substance: OMEPRAZOLE
     Dosage: IF SYMPTOMS WORSEN PLEASE SEE DR. 2 DOSAGE FORMS
     Dates: start: 20200608
  2. MOMETASONE [Concomitant]
     Active Substance: MOMETASONE
     Dosage: 1 DOSAGE FORM
     Dates: start: 20160711
  3. PROCHLORPERAZINE. [Concomitant]
     Active Substance: PROCHLORPERAZINE
     Dosage: AS NECESSARY, 3 DOSAGE FORMS
     Dates: start: 20200626
  4. CODEINE PHOSPHATE [Concomitant]
     Active Substance: CODEINE PHOSPHATE
     Dosage: ONE OR TWO 4 TIMES DAILY
     Dates: start: 20200701
  5. CALCIPOTRIOL [Concomitant]
     Active Substance: CALCIPOTRIENE
     Dosage: 1 DOSAGE FORM
     Dates: start: 20160711
  6. NAPROXEN. [Suspect]
     Active Substance: NAPROXEN
     Dosage: 1000 MG
     Dates: start: 20200626
  7. BETAHISTINE [Concomitant]
     Active Substance: BETAHISTINE
     Dosage: 2 DOSAGE FORMS
     Dates: start: 20200626

REACTIONS (1)
  - Chest pain [Recovered/Resolved]

NARRATIVE: CASE EVENT DATE: 20200701
